FAERS Safety Report 5009043-0 (Version None)
Quarter: 2006Q2

REPORT INFORMATION
  Report Type: 
  Country: None (occurrence: None)
  Receive Date: 20060523
  Receipt Date: 20060420
  Transmission Date: 20061013
  Serious: Yes (Death)
  Sender: FDA-Public Use
  Company Number: NL-BOEHRINGER INGELHEIM PHARMACEUTICALS, INC.-2006-DE-02018GD

PATIENT
  Age: 6 Year
  Sex: Female

DRUGS (4)
  1. SALBUTAMOL [Suspect]
     Indication: ASTHMA
     Dosage: 2.5 MG EVERY HOUR, THE NEBULISATION FREQUENCY WAS LOWERED WHEN SYMPTOMS IMPROVED
     Route: 055
     Dates: start: 20030101
  2. SALBUTAMOL [Suspect]
     Route: 042
     Dates: start: 20030101
  3. ATROVENT [Suspect]
     Indication: ASTHMA
     Dosage: 250 MCG EVERY HOUR, THE NEBULISATION FREQUENCY WAS LOWERED WHEN SYMPTOMS IMPROVED
     Route: 055
     Dates: start: 20030101
  4. HYDROCORTISONE [Suspect]
     Indication: ASTHMA
     Route: 042
     Dates: start: 20030101

REACTIONS (13)
  - ASPIRATION [None]
  - ASTHMA [None]
  - ATELECTASIS [None]
  - BLOOD GLUCOSE INCREASED [None]
  - BLOOD PH DECREASED [None]
  - BLOOD POTASSIUM INCREASED [None]
  - BRONCHOSPASM [None]
  - CIRCULATORY COLLAPSE [None]
  - DRUG INEFFECTIVE [None]
  - LOSS OF CONSCIOUSNESS [None]
  - PCO2 DECREASED [None]
  - PNEUMOTHORAX [None]
  - PULMONARY EOSINOPHILIA [None]
